FAERS Safety Report 5280175-5 (Version None)
Quarter: 2007Q1

REPORT INFORMATION
  Report Type: 
  Country: None (occurrence: None)
  Receive Date: 20070326
  Receipt Date: 20070326
  Transmission Date: 20070707
  Serious: No
  Sender: FDA-Public Use
  Company Number: None

PATIENT
  Age: 52 Year
  Sex: Male
  Weight: 97.5234 kg

DRUGS (1)
  1. ZICAM MATRIXX INITIATIVES [Suspect]
     Indication: NASOPHARYNGITIS
     Dosage: ONE SPRAY EACH NOSTRIL 2X DAILY NASAL  WHEN COLDS SYMPTOMS
     Route: 045
     Dates: start: 20030101, end: 20040301

REACTIONS (1)
  - ANOSMIA [None]
